FAERS Safety Report 24295399 (Version 2)
Quarter: 2024Q3

REPORT INFORMATION
  Report Type: Other
  Country: KZ (occurrence: KZ)
  Receive Date: 20240908
  Receipt Date: 20240916
  Transmission Date: 20241017
  Serious: Yes (Other)
  Sender: MACLEODS
  Company Number: KZ-MACLEODS PHARMA-MAC2024049179

PATIENT

DRUGS (1)
  1. PYRAZINAMIDE [Suspect]
     Active Substance: PYRAZINAMIDE
     Indication: Tuberculous pleurisy
     Dosage: RK-LS-5 NO. 024322, ATX:J04AK01
     Route: 065

REACTIONS (1)
  - Encephalopathy [Recovering/Resolving]
